FAERS Safety Report 14897589 (Version 2)
Quarter: 2018Q2

REPORT INFORMATION
  Report Type: Report from Study
  Country: JP (occurrence: JP)
  Receive Date: 20180515
  Receipt Date: 20180608
  Transmission Date: 20180711
  Serious: Yes (Other)
  Sender: FDA-Public Use
  Company Number: JP-OTSUKA-2018_012293

PATIENT
  Age: 33 Year
  Sex: Male
  Weight: 62 kg

DRUGS (8)
  1. TOLVAPTAN [Suspect]
     Active Substance: TOLVAPTAN
     Indication: CONGENITAL CYSTIC KIDNEY DISEASE
     Dosage: 90MG/DAY, DIVIDED TWO DOSE (EACH DOSE UNKNOWN)
     Route: 048
     Dates: start: 20160708, end: 20170427
  2. TOLVAPTAN [Suspect]
     Active Substance: TOLVAPTAN
     Dosage: 90 MG, QD, IN THE MORNING
     Route: 048
     Dates: start: 20171025
  3. TOLVAPTAN [Suspect]
     Active Substance: TOLVAPTAN
     Dosage: 30 MG, QD, IN THE EVENING
     Route: 048
     Dates: start: 20171025
  4. LOXOPROFEN NA [Concomitant]
     Active Substance: LOXOPROFEN SODIUM
     Indication: PRODUCT USED FOR UNKNOWN INDICATION
     Dosage: 1 SHEET, QD
     Route: 062
     Dates: start: 20170428
  5. TOLVAPTAN [Suspect]
     Active Substance: TOLVAPTAN
     Dosage: 30 MG, QD, IN THE EVENING
     Route: 048
     Dates: start: 20170428, end: 20170620
  6. TOLVAPTAN [Suspect]
     Active Substance: TOLVAPTAN
     Dosage: 30 MG, QD, IN THE EVENING
     Route: 048
     Dates: start: 20170624, end: 20171024
  7. TOLVAPTAN [Suspect]
     Active Substance: TOLVAPTAN
     Dosage: 60 MG, QD, IN THE MORNING
     Route: 048
     Dates: start: 20170428, end: 20170620
  8. TOLVAPTAN [Suspect]
     Active Substance: TOLVAPTAN
     Dosage: 60 MG, QD, IN THE MORNING
     Route: 048
     Dates: start: 20170624, end: 20171024

REACTIONS (2)
  - Blood creatine phosphokinase increased [Unknown]
  - Gastritis [Recovered/Resolved]

NARRATIVE: CASE EVENT DATE: 20170620
